FAERS Safety Report 7790575-7 (Version None)
Quarter: 2011Q3

REPORT INFORMATION
  Report Type: 
  Country: None (occurrence: None)
  Receive Date: 20110930
  Receipt Date: 20110912
  Transmission Date: 20111222
  Serious: No
  Sender: FDA-Public Use
  Company Number: US-ROXANE LABORATORIES, INC.-2011-RO-01279RO

PATIENT
  Sex: Male

DRUGS (4)
  1. NAVANE [Concomitant]
     Dosage: 2 MG
  2. LISINOPRIL [Concomitant]
     Dosage: 5 MG
  3. LITHIUM CARBONATE [Suspect]
     Indication: BIPOLAR DISORDER
     Dosage: 600 MG
     Route: 048
  4. LITHIUM CARBONATE [Suspect]
     Indication: SCHIZOAFFECTIVE DISORDER

REACTIONS (4)
  - CAPSULE PHYSICAL ISSUE [None]
  - PRODUCT SOLUBILITY ABNORMAL [None]
  - GLOSSODYNIA [None]
  - HEADACHE [None]
